FAERS Safety Report 24066789 (Version 1)
Quarter: 2024Q3

REPORT INFORMATION
  Report Type: Spontaneous
  Country: GB (occurrence: GB)
  Receive Date: 20240709
  Receipt Date: 20240709
  Transmission Date: 20241017
  Serious: Yes (Other)
  Sender: PFIZER
  Company Number: GB-SEATTLE GENETICS-2022SGN03790

PATIENT
  Age: 63 Year
  Sex: Female

DRUGS (3)
  1. TUKYSA [Suspect]
     Active Substance: TUCATINIB
     Indication: HER2 positive breast cancer
     Dosage: UNK
     Route: 065
     Dates: start: 202103
  2. CAPECITABINE [Suspect]
     Active Substance: CAPECITABINE
     Indication: HER2 positive breast cancer
     Dosage: UNK
     Route: 065
     Dates: start: 202103
  3. HERCEPTIN [Suspect]
     Active Substance: TRASTUZUMAB
     Indication: HER2 positive breast cancer
     Dosage: UNK
     Route: 065
     Dates: start: 202103

REACTIONS (4)
  - Thrombocytopenia [Recovered/Resolved]
  - Neoplasm progression [Not Recovered/Not Resolved]
  - Neurological symptom [Unknown]
  - Cushingoid [Unknown]

NARRATIVE: CASE EVENT DATE: 20220201
